FAERS Safety Report 9826112 (Version 2)
Quarter: 2014Q1

REPORT INFORMATION
  Report Type: Spontaneous
  Country: US (occurrence: US)
  Receive Date: 20140117
  Receipt Date: 20140206
  Transmission Date: 20141002
  Serious: No
  Sender: FDA-Public Use
  Company Number: US-009507513-1312USA010887

PATIENT
  Age: 21 Year
  Sex: Female
  Weight: 73.16 kg

DRUGS (1)
  1. NEXPLANON [Suspect]
     Dosage: 1 ROD/THREE YEARS
     Route: 059
     Dates: start: 20120815, end: 20140127

REACTIONS (3)
  - Device breakage [Recovered/Resolved]
  - No adverse event [Unknown]
  - Product quality issue [Unknown]
